FAERS Safety Report 7825477-0 (Version None)
Quarter: 2011Q4

REPORT INFORMATION
  Report Type: 
  Country: None (occurrence: None)
  Receive Date: 20111017
  Receipt Date: 20111006
  Transmission Date: 20120403
  Serious: Yes (Other)
  Sender: FDA-Public Use
  Company Number: AUR-APL-2011-05371

PATIENT
  Age: 24 Year
  Sex: Male
  Weight: 91 kg

DRUGS (3)
  1. CLOZARIL [Suspect]
     Indication: PARKINSON'S DISEASE
     Dosage: 300 MG (150 MG,2 IN 1 D),ORAL
     Route: 048
     Dates: start: 20110623, end: 20110721
  2. CLOZARIL [Suspect]
     Indication: PSYCHOTIC DISORDER
     Dosage: 300 MG (150 MG,2 IN 1 D),ORAL
     Route: 048
     Dates: start: 20110623, end: 20110721
  3. MIRTAZAPINE [Suspect]
     Indication: DEPRESSION
     Dosage: (30 MG),ORAL
     Route: 048
     Dates: start: 20110301

REACTIONS (3)
  - HEART RATE IRREGULAR [None]
  - TACHYCARDIA [None]
  - WHITE BLOOD CELL COUNT DECREASED [None]
